FAERS Safety Report 15778768 (Version 1)
Quarter: 2019Q1

REPORT INFORMATION
  Report Type: Other
  Country: US (occurrence: US)
  Receive Date: 20190101
  Receipt Date: 20190101
  Transmission Date: 20190417
  Serious: Yes (Other)
  Sender: FDA-Public Use
  Company Number: US-CHARTWELL PHARMA-2060728

PATIENT
  Age: 33 Year
  Sex: Female

DRUGS (2)
  1. HYDROXYCHLOROQUINE SULFATE. [Concomitant]
     Active Substance: HYDROXYCHLOROQUINE SULFATE
  2. DOXYCYCLINE HYCLATE. [Suspect]
     Active Substance: DOXYCYCLINE HYCLATE
     Indication: POSTOPERATIVE WOUND INFECTION

REACTIONS (3)
  - Onychomadesis [Recovering/Resolving]
  - Toxic epidermal necrolysis [Recovering/Resolving]
  - Neuropathy peripheral [Recovering/Resolving]
